FAERS Safety Report 4941164-0 (Version None)
Quarter: 2006Q1

REPORT INFORMATION
  Report Type: 
  Country: None (occurrence: None)
  Receive Date: 20060308
  Receipt Date: 20060227
  Transmission Date: 20060701
  Serious: Yes (Hospitalization)
  Sender: FDA-Public Use
  Company Number: 200611095BWH

PATIENT
  Age: 69 Year
  Sex: Male

DRUGS (9)
  1. NEXAVAR [Suspect]
     Indication: RENAL CELL CARCINOMA STAGE UNSPECIFIED
     Dosage: 400 MG, BID, ORAL
     Route: 048
     Dates: start: 20060210, end: 20060211
  2. NEXAVAR [Suspect]
     Indication: RENAL CELL CARCINOMA STAGE UNSPECIFIED
     Dosage: 400 MG, BID, ORAL
     Route: 048
     Dates: start: 20060218
  3. FLOMAX [Concomitant]
  4. AVANDIA [Concomitant]
  5. ZOLOFT [Concomitant]
  6. OXAZEPAM [Concomitant]
  7. MULTI-VITAMIN [Concomitant]
  8. PROTONIX [Concomitant]
  9. VYTORIN [Concomitant]

REACTIONS (5)
  - ANOREXIA [None]
  - ASTHENIA [None]
  - CHOLELITHIASIS [None]
  - ERUCTATION [None]
  - VOMITING [None]
